FAERS Safety Report 15158402 (Version 2)
Quarter: 2018Q3

REPORT INFORMATION
  Report Type: Spontaneous
  Country: US (occurrence: US)
  Receive Date: 20180718
  Receipt Date: 20180928
  Transmission Date: 20181010
  Serious: No
  Sender: FDA-Public Use
  Company Number: US-BAYER-2018-132897

PATIENT
  Age: 24 Year
  Sex: Female
  Weight: 61.68 kg

DRUGS (3)
  1. BETADINE [Concomitant]
     Active Substance: POVIDONE-IODINE
     Dosage: UNK
     Dates: start: 20180607
  2. CAMILA [Concomitant]
     Active Substance: NORETHINDRONE
     Dosage: UNK
     Dates: start: 20171221
  3. MIRENA [Suspect]
     Active Substance: LEVONORGESTREL
     Indication: CONTRACEPTION
     Dosage: 20 MCG/24HR, CONT
     Route: 015
     Dates: start: 20180607

REACTIONS (3)
  - Post procedural discomfort [None]
  - Multiple use of single-use product [None]
  - Complication of device insertion [None]

NARRATIVE: CASE EVENT DATE: 20180607
